FAERS Safety Report 16966278 (Version 4)
Quarter: 2020Q2

REPORT INFORMATION
  Report Type: Spontaneous
  Country: US (occurrence: US)
  Receive Date: 20191028
  Receipt Date: 20200603
  Transmission Date: 20200713
  Serious: No
  Sender: FDA-Public Use
  Company Number: US-PFIZER INC-2016519670

PATIENT
  Age: 60 Year
  Sex: Male
  Weight: 82.55 kg

DRUGS (5)
  1. LYRICA [Suspect]
     Active Substance: PREGABALIN
     Indication: PARTIAL SEIZURES
     Dosage: 750 MG, DAILY (150 MG, FIVE TIMES DAILY AT 2 IN AM, 1 AT NOON, 2 AT BEDTIME AS DIRECTED FOR 90 DAYS)
     Route: 048
     Dates: start: 2010
  2. PANTOPRAZOLE [Concomitant]
     Active Substance: PANTOPRAZOLE
     Indication: ABDOMINAL DISCOMFORT
     Dosage: 40 MG, DAILY
     Route: 048
  3. LYRICA [Suspect]
     Active Substance: PREGABALIN
     Indication: EPILEPSY
     Dosage: 750 MG, DAILY (150 MG, FIVE TIMES DAILY AT 2 IN AM, 1 AT NOON, 2 AT BEDTIME AS DIRECTED FOR 90 DAYS)
     Route: 048
     Dates: start: 20150610
  4. LYRICA [Suspect]
     Active Substance: PREGABALIN
     Dosage: 750 MG, DAILY (150 MG, FIVE TIMES DAILY AT 2 IN AM, 1 AT NOON, 2 AT BEDTIME AS DIRECTED FOR 90 DAYS)
     Route: 048
     Dates: start: 202006
  5. VIAGRA [Concomitant]
     Active Substance: SILDENAFIL CITRATE
     Indication: SEXUAL DYSFUNCTION
     Dosage: 100 MG, UNK (AS NEEDED)
     Route: 048

REACTIONS (2)
  - Headache [Unknown]
  - Prescribed overdose [Unknown]

NARRATIVE: CASE EVENT DATE: 2010
